FAERS Safety Report 5180390-5 (Version None)
Quarter: 2006Q4

REPORT INFORMATION
  Report Type: 
  Country: None (occurrence: None)
  Receive Date: 20060919
  Receipt Date: 20060816
  Transmission Date: 20070319
  Serious: No
  Sender: FDA-Public Use
  Company Number: 2006US001592

PATIENT
  Age: 58 Year
  Sex: Female

DRUGS (5)
  1. VESICARE [Suspect]
     Indication: DRUG USE FOR UNKNOWN INDICATION
     Dosage: 5MG, ORAL
     Route: 048
     Dates: start: 20060704, end: 20060714
  2. VESICARE [Suspect]
     Indication: DRUG USE FOR UNKNOWN INDICATION
     Dosage: 5MG, ORAL
     Route: 048
     Dates: start: 20060718
  3. SYNTHROID [Concomitant]
  4. FOSAMAX [Concomitant]
  5. CORTISONE (CORTISONE ACETATE) INJECTION [Concomitant]

REACTIONS (1)
  - PAIN IN EXTREMITY [None]
